FAERS Safety Report 4557039-5 (Version None)
Quarter: 2005Q1

REPORT INFORMATION
  Report Type: 
  Country: None (occurrence: None)
  Receive Date: 20050118
  Receipt Date: 20050103
  Transmission Date: 20050727
  Serious: Yes (Hospitalization, Other)
  Sender: FDA-Public Use
  Company Number: 2004-00829

PATIENT
  Age: 54 Year
  Sex: Male

DRUGS (1)
  1. VELCADE [Suspect]
     Indication: MULTIPLE MYELOMA
     Dosage: 3.50 MG, INTRAVENOUS
     Route: 042
     Dates: start: 20040915

REACTIONS (4)
  - HYPOACUSIS [None]
  - INFLUENZA LIKE ILLNESS [None]
  - MASTOIDITIS [None]
  - OTITIS MEDIA ACUTE [None]
